FAERS Safety Report 6521246-2 (Version None)
Quarter: 2009Q4

REPORT INFORMATION
  Report Type: 
  Country: None (occurrence: None)
  Receive Date: 20091230
  Receipt Date: 20091217
  Transmission Date: 20100525
  Serious: Yes (Other)
  Sender: FDA-Public Use
  Company Number: US-BIOGENIDEC-2009BI041374

PATIENT
  Age: 41 Year
  Sex: Female

DRUGS (1)
  1. TYSABRI [Suspect]
     Indication: DRUG USE FOR UNKNOWN INDICATION
     Route: 042
     Dates: start: 20091116, end: 20091116

REACTIONS (4)
  - ARTHRALGIA [None]
  - CONVULSION [None]
  - HEMIPARESIS [None]
  - MUSCULOSKELETAL STIFFNESS [None]
